FAERS Safety Report 7962124 (Version 4)
Quarter: 2014Q1

REPORT INFORMATION
  Report Type: Spontaneous
  Country: US (occurrence: None)
  Receive Date: 20110506
  Receipt Date: 20140115
  Transmission Date: 20141002
  Serious: Yes (Hospitalization, Other)
  Sender: FDA-Public Use
  Company Number: 2011001934

PATIENT
  Age: 76 Year
  Sex: Male
  Weight: 76 kg

DRUGS (2)
  1. ERLOTINIB [Suspect]
     Indication: ADENOCARCINOMA PANCREAS
     Dosage: 150MG, UID/QD, ORAL
     Route: 048
     Dates: start: 20110207, end: 20110419
  2. UNSPECIFIED INGREDIENT [Suspect]
     Indication: ADENOCARCINOMA PANCREAS
     Dosage: 150 MG, UID/QD, ORAL
     Route: 048
     Dates: start: 20110207, end: 20110404

REACTIONS (14)
  - Ileus [None]
  - Pancreatitis [None]
  - Blood bilirubin increased [None]
  - Blood alkaline phosphatase increased [None]
  - Anxiety [None]
  - Constipation [None]
  - Diarrhoea [None]
  - Disease progression [None]
  - Metastases to liver [None]
  - Pulmonary embolism [None]
  - Lipase increased [None]
  - Abdominal pain [None]
  - Dysphagia [None]
  - Pain in extremity [None]
